FAERS Safety Report 21713920 (Version 1)
Quarter: 2022Q4

REPORT INFORMATION
  Report Type: Spontaneous
  Country: US (occurrence: None)
  Receive Date: 20221209
  Receipt Date: 20221209
  Transmission Date: 20230113
  Serious: Yes (Hospitalization)
  Sender: FDA-Public Use
  Company Number: None

PATIENT
  Age: 6 Year
  Sex: Male
  Weight: 27.9 kg

DRUGS (6)
  1. CYTARABINE [Suspect]
     Active Substance: CYTARABINE
     Dates: end: 20221202
  2. DAUNORUBICIN [Suspect]
     Active Substance: DAUNORUBICIN
     Dates: end: 20221203
  3. DEXAMETHASONE [Suspect]
     Active Substance: DEXAMETHASONE
     Dates: end: 20221203
  4. METHOTREXATE [Suspect]
     Active Substance: METHOTREXATE
     Dates: end: 20221125
  5. ONCASPAR [Suspect]
     Active Substance: PEGASPARGASE
     Dates: end: 20221122
  6. VINCRISTINE SULFATE [Suspect]
     Active Substance: VINCRISTINE SULFATE
     Dates: end: 20221203

REACTIONS (9)
  - Abdominal pain [None]
  - Mucosal inflammation [None]
  - Pyrexia [None]
  - Tachycardia [None]
  - Hypotension [None]
  - Sepsis [None]
  - Staphylococcus test positive [None]
  - Blood culture positive [None]
  - Herpes simplex test positive [None]

NARRATIVE: CASE EVENT DATE: 20221204
